FAERS Safety Report 8114137-7 (Version None)
Quarter: 2012Q1

REPORT INFORMATION
  Report Type: 
  Country: None (occurrence: None)
  Receive Date: 20120204
  Receipt Date: 20120123
  Transmission Date: 20120608
  Serious: Yes (Hospitalization)
  Sender: FDA-Public Use
  Company Number: ES-MYLANLABS-2012S1001703

PATIENT
  Age: 55 Year
  Sex: Male

DRUGS (4)
  1. VALSARTAN [Concomitant]
     Indication: HYPERTENSION
     Route: 065
  2. VENLAFAXINE [Concomitant]
     Indication: DEPRESSION
     Route: 065
  3. OMEPRAZOLE [Suspect]
     Indication: HIATUS HERNIA
     Dosage: 20 MG/DAY
     Route: 065
  4. BISOPROLOL [Concomitant]
     Indication: HYPERTENSION
     Route: 065

REACTIONS (3)
  - HYPOMAGNESAEMIA [None]
  - HYPOCALCAEMIA [None]
  - HYPOKALAEMIA [None]
